FAERS Safety Report 20726190 (Version 6)
Quarter: 2023Q4

REPORT INFORMATION
  Report Type: Spontaneous
  Country: US (occurrence: US)
  Receive Date: 20220419
  Receipt Date: 20231128
  Transmission Date: 20240110
  Serious: Yes (Other)
  Sender: FDA-Public Use
  Company Number: US-PFIZER INC-202200186200

PATIENT
  Age: 65 Year
  Sex: Female
  Weight: 102.49 kg

DRUGS (5)
  1. IBRANCE [Suspect]
     Active Substance: PALBOCICLIB
     Indication: Breast cancer female
     Dosage: 75 MG, DAILY
     Route: 048
     Dates: start: 20210304
  2. IBRANCE [Suspect]
     Active Substance: PALBOCICLIB
     Indication: Breast cancer metastatic
     Dosage: 75 MG, CYCLIC (1 TABLET PO DAILY FOR 21 DAYS THEN 7 DAYS OFF)
     Route: 048
  3. LETROZOLE [Concomitant]
     Active Substance: LETROZOLE
     Indication: Breast cancer metastatic
     Dosage: UNK
     Dates: start: 202103
  4. VERZENIO [Concomitant]
     Active Substance: ABEMACICLIB
     Indication: Breast cancer metastatic
     Dosage: UNK
     Dates: start: 202103, end: 202108
  5. NEURONTIN [Concomitant]
     Active Substance: GABAPENTIN
     Dosage: 300 MG, 1X/DAY (1 CAPSULE BY MOUTH EVERY NIGHT AT BEDTIME)
     Route: 048

REACTIONS (8)
  - Spinal operation [Unknown]
  - Cerebral disorder [Unknown]
  - Dissociation [Unknown]
  - Fear [Unknown]
  - Confusional state [Unknown]
  - Fatigue [Not Recovered/Not Resolved]
  - Memory impairment [Unknown]
  - Off label use [Unknown]
